FAERS Safety Report 7611164-0 (Version None)
Quarter: 2011Q3

REPORT INFORMATION
  Report Type: 
  Country: None (occurrence: None)
  Receive Date: 20110715
  Receipt Date: 20110708
  Transmission Date: 20111222
  Serious: Yes (Hospitalization)
  Sender: FDA-Public Use
  Company Number: US-BAYER-2011-050257

PATIENT
  Age: 50 Year
  Sex: Male
  Weight: 68.934 kg

DRUGS (5)
  1. ONDANSETRON [Concomitant]
  2. PREVACID [Concomitant]
  3. FUROSEMIDE [Concomitant]
  4. SPIRONOLACTONE [Concomitant]
  5. NEXAVAR [Suspect]
     Indication: HEPATIC NEOPLASM MALIGNANT
     Dosage: 400 MG, BID
     Route: 048
     Dates: start: 20110531

REACTIONS (10)
  - PAIN IN EXTREMITY [None]
  - TONGUE DISCOLOURATION [None]
  - HYPERKERATOSIS [None]
  - ORAL DISCOMFORT [None]
  - GLOSSODYNIA [None]
  - SWOLLEN TONGUE [None]
  - LIP SWELLING [None]
  - ERYTHEMA [None]
  - WHITE BLOOD CELL COUNT DECREASED [None]
  - FATIGUE [None]
